FAERS Safety Report 6668155-6 (Version None)
Quarter: 2010Q2

REPORT INFORMATION
  Report Type: 
  Country: None (occurrence: None)
  Receive Date: 20100406
  Receipt Date: 20100211
  Transmission Date: 20101027
  Serious: No
  Sender: FDA-Public Use
  Company Number: 2010BI005579

PATIENT
  Age: 48 Year
  Sex: Female

DRUGS (3)
  1. TYSABRI [Suspect]
     Indication: MULTIPLE SCLEROSIS
     Route: 042
     Dates: start: 20061204, end: 20100104
  2. TOVIAZ [Concomitant]
     Indication: BLADDER DISORDER
  3. TOVIAZ [Concomitant]
     Dates: start: 20100101

REACTIONS (8)
  - ATROPHY [None]
  - EMOTIONAL DISORDER [None]
  - FUNGAL SKIN INFECTION [None]
  - HEADACHE [None]
  - IMMUNE SYSTEM DISORDER [None]
  - PANNICULITIS [None]
  - RASH [None]
  - STAPHYLOCOCCAL SKIN INFECTION [None]
